FAERS Safety Report 26095875 (Version 1)
Quarter: 2025Q4

REPORT INFORMATION
  Report Type: Spontaneous
  Country: CA (occurrence: CA)
  Receive Date: 20251127
  Receipt Date: 20251127
  Transmission Date: 20260117
  Serious: Yes (Other)
  Sender: AMGEN
  Company Number: CA-AMGEN-CANSP2025230454

PATIENT
  Age: 1 Year
  Sex: Female

DRUGS (5)
  1. RITUXIMAB [Suspect]
     Active Substance: RITUXIMAB
     Indication: Liver transplant rejection
     Dosage: UNK
     Route: 065
  2. CORTICOSTEROID NOS [Concomitant]
     Active Substance: CORTICOSTEROID NOS
     Dosage: 1 MILLIGRAM/KILOGRAM, BID
  3. BASILIXIMAB [Concomitant]
     Active Substance: BASILIXIMAB
     Dosage: DO AND D4 POST-TRANSPLANT
  4. TACROLIMUS [Concomitant]
     Active Substance: TACROLIMUS
  5. MYCOPHENOLATE MOFETIL [Concomitant]
     Active Substance: MYCOPHENOLATE MOFETIL

REACTIONS (7)
  - Autoimmune haemolytic anaemia [Unknown]
  - Hepatitis chronic active [Unknown]
  - Hepatic cytolysis [Unknown]
  - Secondary immunodeficiency [Unknown]
  - Hepatic enzyme abnormal [Unknown]
  - Reticulocytosis [Unknown]
  - Off label use [Unknown]
